FAERS Safety Report 5939556-6 (Version None)
Quarter: 2008Q4

REPORT INFORMATION
  Report Type: 
  Country: None (occurrence: None)
  Receive Date: 20081029
  Receipt Date: 20081015
  Transmission Date: 20090506
  Serious: Yes (Other)
  Sender: FDA-Public Use
  Company Number: 100#08#2008-05293

PATIENT
  Age: 68 Year
  Sex: Female

DRUGS (6)
  1. MINOCYCLINE HCL [Suspect]
     Indication: DEVICE RELATED INFECTION
  2. DOXYCYCLINE [Suspect]
     Indication: DEVICE RELATED INFECTION
  3. FUSIDIC ACID [Suspect]
     Indication: DEVICE RELATED INFECTION
  4. PRISTINAMYCIN (PRISTINAMYCIN) [Concomitant]
  5. VANCOMYCIN [Concomitant]
  6. MEROPENEM (MEROPENEM) [Concomitant]

REACTIONS (3)
  - ABDOMINAL DISCOMFORT [None]
  - DIARRHOEA [None]
  - DRUG INTOLERANCE [None]
